FAERS Safety Report 5526190-5 (Version None)
Quarter: 2007Q4

REPORT INFORMATION
  Report Type: 
  Country: None (occurrence: None)
  Receive Date: 20071120
  Receipt Date: 20071102
  Transmission Date: 20080405
  Serious: Yes (Hospitalization, Other)
  Sender: FDA-Public Use
  Company Number: 2007VX002797

PATIENT
  Sex: Male

DRUGS (7)
  1. PERMAX [Suspect]
     Indication: PARKINSON'S DISEASE
     Dosage: 1 MG;QID;PO
     Route: 048
     Dates: start: 19830101
  2. LEVODOPA [Concomitant]
  3. CLOZAPINE [Concomitant]
  4. DIOVAN HCT [Concomitant]
  5. CARBIDOPA + LEVODOPA [Concomitant]
  6. COMTESS [Concomitant]
  7. FUROSEMIDE [Concomitant]

REACTIONS (11)
  - AMYLOIDOSIS [None]
  - ANAEMIA [None]
  - ATELECTASIS [None]
  - DEPRESSION [None]
  - GAMMA-GLUTAMYLTRANSFERASE INCREASED [None]
  - PERICARDITIS CONSTRICTIVE [None]
  - PLEURAL EFFUSION [None]
  - PLEURAL FIBROSIS [None]
  - PNEUMONIA [None]
  - RED BLOOD CELL COUNT DECREASED [None]
  - RENAL FAILURE [None]
